FAERS Safety Report 10066369 (Version 1)
Quarter: 2014Q2

REPORT INFORMATION
  Report Type: Spontaneous
  Country: US (occurrence: US)
  Receive Date: 20140408
  Receipt Date: 20140408
  Transmission Date: 20141212
  Serious: No
  Sender: FDA-Public Use
  Company Number: US-PFIZER INC-2014096045

PATIENT
  Age: 79 Year
  Sex: Female
  Weight: 90.25 kg

DRUGS (2)
  1. GABAPENTIN [Suspect]
     Indication: SCIATICA
     Dosage: 300 MG, 3X/DAY
  2. GABAPENTIN [Suspect]
     Dosage: 300 MG, 2X/DAY

REACTIONS (3)
  - Anxiety [Unknown]
  - Feeling abnormal [Unknown]
  - Pruritus [Unknown]
